FAERS Safety Report 15874066 (Version 1)
Quarter: 2019Q1

REPORT INFORMATION
  Report Type: Other
  Country: US (occurrence: US)
  Receive Date: 20190126
  Receipt Date: 20190126
  Transmission Date: 20190417
  Serious: No
  Sender: FDA-Public Use
  Company Number: US-ACORDA-ACO_151145_2018

PATIENT
  Age: 81 Year
  Sex: Female

DRUGS (2)
  1. AMPYRA [Suspect]
     Active Substance: DALFAMPRIDINE
     Indication: MULTIPLE SCLEROSIS
     Dosage: 10 MG, BID
     Route: 048
     Dates: start: 20180519, end: 20180520
  2. AMPYRA [Suspect]
     Active Substance: DALFAMPRIDINE
     Indication: SPINOCEREBELLAR ATAXIA

REACTIONS (4)
  - Hypoaesthesia [Recovering/Resolving]
  - Off label use [Unknown]
  - Gait inability [Recovering/Resolving]
  - Nausea [Recovering/Resolving]

NARRATIVE: CASE EVENT DATE: 20180519
